FAERS Safety Report 16200806 (Version 1)
Quarter: 2019Q2

REPORT INFORMATION
  Report Type: Spontaneous
  Country: US (occurrence: US)
  Receive Date: 20190416
  Receipt Date: 20190416
  Transmission Date: 20190711
  Serious: No
  Sender: FDA-Public Use
  Company Number: US-BION-007308

PATIENT
  Sex: Male

DRUGS (1)
  1. ALEVE [Suspect]
     Active Substance: NAPROXEN SODIUM
     Indication: SCIATICA
     Dosage: EITHER TOOK ONE OR TWO ALEVE IN A DAY
     Route: 065

REACTIONS (3)
  - Drug effective for unapproved indication [Not Recovered/Not Resolved]
  - Faeces discoloured [Unknown]
  - Dizziness [Unknown]
